FAERS Safety Report 5025405-X (Version None)
Quarter: 2006Q2

REPORT INFORMATION
  Report Type: 
  Country: None (occurrence: None)
  Receive Date: 20060608
  Receipt Date: 20060531
  Transmission Date: 20061013
  Serious: Yes (Hospitalization, Other)
  Sender: FDA-Public Use
  Company Number: 2006071317

PATIENT
  Age: 52 Year
  Sex: Female
  Weight: 64.4108 kg

DRUGS (12)
  1. ZYRTEC [Suspect]
     Indication: HYPERSENSITIVITY
     Dosage: SEE IMAGE
     Dates: start: 20010101
  2. ZYRTEC [Suspect]
     Indication: HYPERSENSITIVITY
     Dosage: SEE IMAGE
     Dates: start: 20020101
  3. STATINS (HMG COA REDUCTASE INHIBITORS) [Suspect]
     Indication: ILL-DEFINED DISORDER
  4. BENADRYL [Concomitant]
  5. ALL OTHER THERAPEUTIC PRODUCTS [Concomitant]
  6. ENALAPRIL [Concomitant]
  7. AMBIEN [Concomitant]
  8. VITAMIN B12 FOR INJECTION (CYANOCOBALAMIN) [Concomitant]
  9. CALCIUM WITH VITAMIN D (CALCIUM PHOSPHATE, CALCIUM SODIUM LACTATE, ERG [Concomitant]
  10. PARAFFIN [Concomitant]
  11. ENTEX (GUAIFENESIN, PHENYLEPHRINE HYDROCHLORIDE, PHENYLPROPANOLAMINE H [Concomitant]
  12. XANAX [Concomitant]

REACTIONS (6)
  - ABNORMAL BEHAVIOUR [None]
  - CONVULSION [None]
  - HYPERGLYCAEMIA [None]
  - INSOMNIA [None]
  - LOSS OF CONSCIOUSNESS [None]
  - URTICARIA [None]
